FAERS Safety Report 5695871-5 (Version None)
Quarter: 2008Q2

REPORT INFORMATION
  Report Type: 
  Country: None (occurrence: None)
  Receive Date: 20080404
  Receipt Date: 20080404
  Transmission Date: 20081010
  Serious: Yes (Other)
  Sender: FDA-Public Use
  Company Number: None

PATIENT
  Age: 9 Year
  Sex: Male
  Weight: 39.0093 kg

DRUGS (2)
  1. SINGULAIR [Suspect]
     Indication: ASTHMA
     Dosage: 5MG QHS  PO
     Route: 048
     Dates: start: 20070215, end: 20080401
  2. SINGULAIR [Suspect]
     Indication: RHINITIS ALLERGIC
     Dosage: 5MG QHS  PO
     Route: 048
     Dates: start: 20070215, end: 20080401

REACTIONS (9)
  - ABNORMAL BEHAVIOUR [None]
  - ANGER [None]
  - DISTURBANCE IN ATTENTION [None]
  - EDUCATIONAL PROBLEM [None]
  - HOMICIDAL IDEATION [None]
  - MOOD SWINGS [None]
  - MORBID THOUGHTS [None]
  - RESTLESSNESS [None]
  - VIOLENCE-RELATED SYMPTOM [None]
